FAERS Safety Report 14024477 (Version 5)
Quarter: 2019Q3

REPORT INFORMATION
  Report Type: Spontaneous
  Country: US (occurrence: US)
  Receive Date: 20170928
  Receipt Date: 20190704
  Transmission Date: 20191004
  Serious: Yes (Hospitalization, Other)
  Sender: FDA-Public Use
  Company Number: US-SA-2017SA008573

PATIENT
  Sex: Female

DRUGS (4)
  1. AUBAGIO [Suspect]
     Active Substance: TERIFLUNOMIDE
     Dosage: 14 MG,QD
     Route: 048
  2. AUBAGIO [Suspect]
     Active Substance: TERIFLUNOMIDE
     Indication: MULTIPLE SCLEROSIS
     Dosage: 14 MG, QD
     Route: 048
     Dates: start: 20160824
  3. AUBAGIO [Suspect]
     Active Substance: TERIFLUNOMIDE
     Dosage: 14 MG,QD
     Route: 048
     Dates: start: 20160930
  4. AUBAGIO [Suspect]
     Active Substance: TERIFLUNOMIDE
     Dosage: 14 MG,QD
     Route: 048

REACTIONS (10)
  - Neuropathy peripheral [Recovering/Resolving]
  - Neoplasm malignant [Unknown]
  - Functional gastrointestinal disorder [Recovering/Resolving]
  - Hospitalisation [Unknown]
  - Hypoaesthesia [Unknown]
  - Vertigo [Unknown]
  - Multiple sclerosis relapse [Unknown]
  - Depression [Recovering/Resolving]
  - Bladder disorder [Recovering/Resolving]
  - Insomnia [Recovering/Resolving]
